FAERS Safety Report 5820405-1 (Version None)
Quarter: 2008Q3

REPORT INFORMATION
  Report Type: 
  Country: None (occurrence: None)
  Receive Date: 20080724
  Receipt Date: 20070629
  Transmission Date: 20090109
  Serious: No
  Sender: FDA-Public Use
  Company Number: A0661014A

PATIENT
  Age: 50 Year
  Sex: Female

DRUGS (5)
  1. AVANDIA [Suspect]
     Dosage: 150MG PER DAY
     Route: 048
     Dates: start: 20070401
  2. LIPRINAL [Concomitant]
  3. METFORMIN [Concomitant]
     Dosage: 500MG TWICE PER DAY
  4. SIMVASTATIN [Concomitant]
     Indication: BLOOD CHOLESTEROL INCREASED
  5. ASPIRIN [Concomitant]

REACTIONS (1)
  - COUGH [None]
